FAERS Safety Report 8385086-4 (Version None)
Quarter: 2012Q2

REPORT INFORMATION
  Report Type: 
  Country: None (occurrence: None)
  Receive Date: 20120524
  Receipt Date: 20120517
  Transmission Date: 20120825
  Serious: Yes (Hospitalization)
  Sender: FDA-Public Use
  Company Number: US-B.I. PHARMACEUTICALS,INC./RIDGEFIELD-2011-BP-19157BP

PATIENT
  Sex: Male

DRUGS (12)
  1. CARDIAZEM [Concomitant]
     Indication: HYPERTENSION
  2. OMEPRAZOLE [Concomitant]
     Indication: GASTROOESOPHAGEAL REFLUX DISEASE
  3. GUIATUSSIN [Concomitant]
     Indication: CHRONIC OBSTRUCTIVE PULMONARY DISEASE
  4. ADVAIR HFA [Concomitant]
     Indication: CHRONIC OBSTRUCTIVE PULMONARY DISEASE
     Route: 055
  5. XOPENEX HFA [Concomitant]
     Indication: CHRONIC OBSTRUCTIVE PULMONARY DISEASE
     Route: 055
  6. PRADAXA [Suspect]
     Indication: ATRIAL FIBRILLATION
     Dosage: 300 MG
     Route: 048
     Dates: start: 20110501, end: 20111108
  7. CARDIAZEM [Concomitant]
     Indication: ATRIAL FIBRILLATION
  8. PEPCID AC [Concomitant]
     Indication: DYSPEPSIA
  9. PRADAXA [Suspect]
     Dosage: 300 MG
     Route: 048
     Dates: start: 20111111
  10. M.V.I. [Concomitant]
     Indication: VITAMIN SUPPLEMENTATION
  11. BENADRYL [Concomitant]
     Indication: HYPERSENSITIVITY
  12. SPIRIVA [Concomitant]
     Indication: CHRONIC OBSTRUCTIVE PULMONARY DISEASE
     Dosage: 18 MCG
     Route: 055

REACTIONS (5)
  - THROMBOSIS [None]
  - FATIGUE [None]
  - URINARY TRACT INFECTION [None]
  - HAEMATURIA [None]
  - BENIGN NEOPLASM [None]
